FAERS Safety Report 6817353-7 (Version None)
Quarter: 2010Q3

REPORT INFORMATION
  Report Type: 
  Country: None (occurrence: None)
  Receive Date: 20100706
  Receipt Date: 20100628
  Transmission Date: 20110219
  Serious: Yes (Death, Other)
  Sender: FDA-Public Use
  Company Number: US-ROCHE-713106

PATIENT
  Age: 51 Year
  Sex: Male

DRUGS (6)
  1. MYCOPHENOLATE MOFETIL [Suspect]
     Route: 065
  2. MYCOPHENOLATE MOFETIL [Suspect]
     Dosage: LOWERED DOSAGE
     Route: 065
  3. TACROLIMUS [Suspect]
     Route: 065
  4. TACROLIMUS [Suspect]
     Dosage: LOWERED DOSAGE
     Route: 065
  5. PREDNISONE TAB [Suspect]
     Route: 065
  6. PREDNISONE TAB [Suspect]
     Dosage: LOWERED DOSAGE
     Route: 065

REACTIONS (6)
  - CYTOMEGALOVIRUS INFECTION [None]
  - DIABETES MELLITUS [None]
  - EPSTEIN-BARR VIRUS ASSOCIATED LYMPHOPROLIFERATIVE DISORDER [None]
  - PHAEHYPHOMYCOSIS [None]
  - SCEDOSPORIUM INFECTION [None]
  - TRANSPLANT REJECTION [None]
